FAERS Safety Report 20475608 (Version 1)
Quarter: 2022Q1

REPORT INFORMATION
  Report Type: Spontaneous
  Country: US (occurrence: None)
  Receive Date: 20220215
  Receipt Date: 20220215
  Transmission Date: 20220423
  Serious: Yes (Hospitalization)
  Sender: FDA-Public Use
  Company Number: None

PATIENT
  Age: 21 Year
  Sex: Male
  Weight: 78.9 kg

DRUGS (6)
  1. CYCLOPHOSPHAMIDE [Suspect]
     Active Substance: CYCLOPHOSPHAMIDE
     Dates: end: 20220201
  2. CYTARABINE [Suspect]
     Active Substance: CYTARABINE
     Dates: end: 20210211
  3. DOXORUBICIN HYDROCHLORIDE [Suspect]
     Active Substance: DOXORUBICIN HYDROCHLORIDE
     Dates: end: 20220118
  4. METHOTREXATE [Suspect]
     Active Substance: METHOTREXATE
     Dates: end: 20220201
  5. THIOGUANINE ANHYDROUS [Suspect]
     Active Substance: THIOGUANINE ANHYDROUS
  6. VINCRISTINE SULFATE [Suspect]
     Active Substance: VINCRISTINE SULFATE
     Dates: end: 20220118

REACTIONS (2)
  - Pyrexia [None]
  - Neutrophil count decreased [None]

NARRATIVE: CASE EVENT DATE: 20210211
